FAERS Safety Report 24722371 (Version 2)
Quarter: 2024Q4

REPORT INFORMATION
  Report Type: Spontaneous
  Country: US (occurrence: US)
  Receive Date: 20241211
  Receipt Date: 20241218
  Transmission Date: 20250115
  Serious: No
  Sender: PFIZER
  Company Number: US-PFIZER INC-202400318100

PATIENT
  Age: 13 Year
  Sex: Male

DRUGS (1)
  1. NGENLA [Suspect]
     Active Substance: SOMATROGON-GHLA
     Indication: Hypopituitarism
     Dosage: 30 MG, WEEKLY
     Dates: start: 20241117

REACTIONS (2)
  - Headache [Unknown]
  - Injection site pain [Unknown]

NARRATIVE: CASE EVENT DATE: 20241118
